FAERS Safety Report 6305655-2 (Version None)
Quarter: 2009Q3

REPORT INFORMATION
  Report Type: 
  Country: None (occurrence: None)
  Receive Date: 20090807
  Receipt Date: 20090723
  Transmission Date: 20100115
  Serious: Yes (Hospitalization)
  Sender: FDA-Public Use
  Company Number: ADE2009-0768

PATIENT
  Age: 8 Year
  Weight: 15 kg

DRUGS (1)
  1. ONDANSETRON [Suspect]
     Indication: ANAL ABSCESS
     Dosage: 2 MG, X1, IV
     Route: 042

REACTIONS (4)
  - APNOEIC ATTACK [None]
  - BRADYCARDIA [None]
  - LOSS OF CONSCIOUSNESS [None]
  - SINUS BRADYCARDIA [None]
